FAERS Safety Report 8145358-5 (Version None)
Quarter: 2012Q1

REPORT INFORMATION
  Report Type: 
  Country: None (occurrence: None)
  Receive Date: 20120217
  Receipt Date: 20120210
  Transmission Date: 20120608
  Serious: Yes (Hospitalization, Other)
  Sender: FDA-Public Use
  Company Number: CA-US-EMD SERONO, INC.-7095948

PATIENT
  Sex: Female
  Weight: 47 kg

DRUGS (9)
  1. FLORINEF (ADRENOCORTICAL INSUFF) [Concomitant]
     Indication: PRODUCT USED FOR UNKNOWN INDICATION
  2. VITAMIN D [Concomitant]
     Indication: PRODUCT USED FOR UNKNOWN INDICATION
  3. DUKOSATE SODIUM (DOCUSATE SODIUM) [Concomitant]
     Indication: PRODUCT USED FOR UNKNOWN INDICATION
  4. SENNA-MINT WAF [Concomitant]
     Indication: PRODUCT USED FOR UNKNOWN INDICATION
  5. SOLIUM CLORIDE (SODIUM CHLORIDE) [Concomitant]
     Indication: PRODUCT USED FOR UNKNOWN INDICATION
  6. ACETAMINOPHEN [Concomitant]
     Indication: PRODUCT USED FOR UNKNOWN INDICATION
     Route: 048
  7. REBIF [Suspect]
     Indication: RELAPSING-REMITTING MULTIPLE SCLEROSIS
     Route: 058
     Dates: start: 20111013, end: 20120111
  8. PANTOPRAZOLE [Concomitant]
     Indication: PRODUCT USED FOR UNKNOWN INDICATION
  9. POTASSIUM CHLORIDE [Concomitant]
     Indication: PRODUCT USED FOR UNKNOWN INDICATION

REACTIONS (10)
  - FALL [None]
  - BODY TEMPERATURE INCREASED [None]
  - CONTUSION [None]
  - MUSCULAR WEAKNESS [None]
  - PARKINSONISM [None]
  - BLOOD POTASSIUM DECREASED [None]
  - HEADACHE [None]
  - HYPOTENSION [None]
  - LIP INJURY [None]
  - ASTHENIA [None]
